FAERS Safety Report 12114893 (Version 1)
Quarter: 2016Q1

REPORT INFORMATION
  Report Type: Spontaneous
  Country: GB (occurrence: GB)
  Receive Date: 20160225
  Receipt Date: 20160225
  Transmission Date: 20160526
  Serious: Yes (Other)
  Sender: FDA-Public Use
  Company Number: GB-PFIZER INC-2016106420

PATIENT
  Sex: Male

DRUGS (1)
  1. ATORVASTATIN CALCIUM. [Suspect]
     Active Substance: ATORVASTATIN CALCIUM
     Dosage: 10 MG, TAKEN FOR SOME TIME AND TAKEN BEFORE GOING TO BED

REACTIONS (5)
  - Product size issue [Unknown]
  - Oropharyngeal pain [Unknown]
  - Product taste abnormal [Unknown]
  - Choking [Unknown]
  - Feeling abnormal [Unknown]
